FAERS Safety Report 5570961-6 (Version None)
Quarter: 2007Q4

REPORT INFORMATION
  Report Type: 
  Country: None (occurrence: None)
  Receive Date: 20071221
  Receipt Date: 20071212
  Transmission Date: 20080405
  Serious: Yes (Other)
  Sender: FDA-Public Use
  Company Number: BR-AMGEN-US240034

PATIENT
  Sex: Male
  Weight: 92 kg

DRUGS (1)
  1. ENBREL [Suspect]
     Indication: ANKYLOSING SPONDYLITIS
     Route: 058
     Dates: start: 20070201

REACTIONS (5)
  - CRANIAL NERVE INFECTION [None]
  - SKIN EXFOLIATION [None]
  - SKIN IRRITATION [None]
  - THROAT IRRITATION [None]
  - UVEITIS [None]
